FAERS Safety Report 22607597 (Version 5)
Quarter: 2023Q4

REPORT INFORMATION
  Report Type: Report from Study
  Country: US (occurrence: US)
  Receive Date: 20230616
  Receipt Date: 20231107
  Transmission Date: 20240110
  Serious: No
  Sender: FDA-Public Use
  Company Number: US-ACADIA PHARMACEUTICALS INC.-ACA-2023-TRF-001988

PATIENT
  Age: 15 Year
  Sex: Female

DRUGS (22)
  1. DAYBUE [Suspect]
     Active Substance: TROFINETIDE
     Indication: Rett syndrome
     Dosage: 40 MILLILITER, BID
     Route: 048
     Dates: start: 20230518
  2. DAYBUE [Suspect]
     Active Substance: TROFINETIDE
     Dosage: 30 MILLILITER, BID
     Route: 048
  3. DAYBUE [Suspect]
     Active Substance: TROFINETIDE
     Dosage: 40 MILLILITER, BID
     Route: 048
  4. CLONIDINE [Concomitant]
     Active Substance: CLONIDINE
     Dosage: 0.1 MG
     Dates: start: 2016
  5. LAMOTRIGINE [Concomitant]
     Active Substance: LAMOTRIGINE
     Dosage: 50 MILLIGRAM
     Dates: start: 2016
  6. TOPAMAX [Concomitant]
     Active Substance: TOPIRAMATE
     Dosage: 50 MILLIGRAM
     Dates: start: 2021
  7. MIDAZOLAM HYDROCHLORIDE [Concomitant]
     Active Substance: MIDAZOLAM HYDROCHLORIDE
     Dosage: 5 MG/ML
     Dates: start: 2017
  8. CLINDAMYCIN [Concomitant]
     Active Substance: CLINDAMYCIN
     Dosage: 20 MILLIGRAM
     Dates: start: 2021
  9. NADOLOL [Concomitant]
     Active Substance: NADOLOL
     Dosage: 20 MILLIGRAM
     Dates: start: 2016
  10. CYPROHEPTADINE [Concomitant]
     Active Substance: CYPROHEPTADINE
     Dosage: 2 MG/5 ML
     Dates: start: 2014
  11. LANSOPRAZOLE [Concomitant]
     Active Substance: LANSOPRAZOLE
     Dosage: 15 MILLIGRAM DR
     Dates: start: 2021
  12. LACTULOSE [Concomitant]
     Active Substance: LACTULOSE
     Dosage: 10 GRAM/15ML
     Dates: start: 2021
  13. PROBIOTICS NOS [Concomitant]
     Active Substance: PROBIOTICS NOS
  14. IRON [Concomitant]
     Active Substance: IRON
     Dosage: ORAL
  15. VITAMIN D3 [Concomitant]
     Active Substance: CHOLECALCIFEROL
  16. FISH OIL [Concomitant]
     Active Substance: FISH OIL
  17. LOPERAMIDE [Concomitant]
     Active Substance: LOPERAMIDE
  18. VITAMINS NOS [Concomitant]
     Active Substance: VITAMINS
     Dosage: UNK
  19. XCOPRI [Concomitant]
     Active Substance: CENOBAMATE
     Dosage: 50 MILLIGRAM
     Dates: start: 2023
  20. TRAZODONE [Concomitant]
     Active Substance: TRAZODONE HYDROCHLORIDE
     Dosage: 50 MILLIGRAM
     Dates: start: 2021
  21. VITAMIN C [Concomitant]
     Active Substance: ASCORBIC ACID
  22. CHILDREN^S MULTIVITAMIN W/IRON [Concomitant]

REACTIONS (12)
  - Night sweats [Recovered/Resolved]
  - Nausea [Not Recovered/Not Resolved]
  - Hyperhidrosis [Not Recovered/Not Resolved]
  - Weight decreased [Unknown]
  - Abdominal discomfort [Unknown]
  - Vomiting [Unknown]
  - Diarrhoea [Not Recovered/Not Resolved]
  - Diarrhoea [Not Recovered/Not Resolved]
  - Diarrhoea [Not Recovered/Not Resolved]
  - Decreased appetite [Unknown]
  - Diarrhoea [Recovering/Resolving]
  - Diarrhoea [Recovering/Resolving]

NARRATIVE: CASE EVENT DATE: 20230518
